FAERS Safety Report 4798866-9 (Version None)
Quarter: 2005Q4

REPORT INFORMATION
  Report Type: 
  Country: None (occurrence: None)
  Receive Date: 20051014
  Receipt Date: 20051006
  Transmission Date: 20060501
  Serious: Yes (Death, Life-Threatening, Hospitalization)
  Sender: FDA-Public Use
  Company Number: FR-GLAXOSMITHKLINE-B0396822A

PATIENT
  Age: 59 Year
  Sex: Male
  Weight: 100 kg

DRUGS (6)
  1. ZOVIRAX [Suspect]
     Dosage: 500MG PER DAY
     Route: 042
     Dates: start: 20050919, end: 20050927
  2. ALKERAN [Suspect]
     Indication: STEM CELL TRANSPLANT
     Dosage: 200MG PER DAY
     Route: 042
     Dates: start: 20050913, end: 20050913
  3. SKENAN [Suspect]
     Dosage: 90MG PER DAY
     Route: 048
     Dates: start: 20050914, end: 20050918
  4. DURAGESIC-100 [Suspect]
     Dosage: 75MG PER DAY
     Route: 062
     Dates: start: 20050919
  5. SEVREDOL [Suspect]
     Dosage: 20MG PER DAY
     Route: 048
     Dates: start: 20050918
  6. ZELITREX [Concomitant]
     Dosage: 500MG PER DAY

REACTIONS (9)
  - BONE MARROW FAILURE [None]
  - COMA [None]
  - DISTURBANCE IN ATTENTION [None]
  - ENCEPHALITIS TOXIC [None]
  - MIOSIS [None]
  - MUCOSAL INFLAMMATION [None]
  - MULTI-ORGAN FAILURE [None]
  - OVERDOSE [None]
  - TONIC CLONIC MOVEMENTS [None]
